FAERS Safety Report 24977303 (Version 1)
Quarter: 2025Q1

REPORT INFORMATION
  Report Type: Spontaneous
  Country: US (occurrence: US)
  Receive Date: 20250217
  Receipt Date: 20250217
  Transmission Date: 20250408
  Serious: No
  Sender: DR REDDYS
  Company Number: US-DRL-USA-USA/2025/02/002186

PATIENT
  Age: 47 Year
  Sex: Female
  Weight: 55.38 kg

DRUGS (1)
  1. JAVYGTOR [Suspect]
     Active Substance: SAPROPTERIN DIHYDROCHLORIDE
     Indication: Phenylketonuria
     Dosage: DOSE: FIVE 100 MG TABLETS
     Route: 048

REACTIONS (2)
  - Illness [Unknown]
  - Therapy interrupted [Unknown]
